FAERS Safety Report 13494021 (Version 1)
Quarter: 2017Q2

REPORT INFORMATION
  Report Type: Spontaneous
  Country: NO (occurrence: NO)
  Receive Date: 20170427
  Receipt Date: 20170427
  Transmission Date: 20170830
  Serious: Yes (Hospitalization)
  Sender: FDA-Public Use
  Company Number: NO-MYLANLABS-2017M1024807

PATIENT

DRUGS (8)
  1. ALLOPURINOL. [Concomitant]
     Active Substance: ALLOPURINOL
     Indication: GOUT
     Dosage: DOSE REDUCED FROM 100 MG X 3 TO 200 MG X 1 DUE TO LOW URATE.
     Route: 048
  2. COLCHICINE. [Interacting]
     Active Substance: COLCHICINE
     Indication: GOUT
     Dosage: POSSIBLY IMPROPERLY USED. INTENDED TO BE USED AS NEEDED, BUT HAS BEEN USED PERMANENTLY.
     Route: 048
     Dates: start: 201702, end: 20170330
  3. PARACETAMOL [Concomitant]
     Active Substance: ACETAMINOPHEN
     Indication: PAIN
     Dosage: 1 G UP TO X 3 AS NEEDED
     Route: 048
  4. ISOPTIN [Suspect]
     Active Substance: VERAPAMIL HYDROCHLORIDE
     Dates: end: 201704
  5. TRENTAL [Concomitant]
     Active Substance: PENTOXIFYLLINE
     Indication: INTERMITTENT CLAUDICATION
     Dates: end: 201704
  6. ENALAPRIL [Concomitant]
     Active Substance: ENALAPRIL
     Dosage: 5 MG, UNK
     Dates: end: 20170329
  7. PANTOPRAZOLE [Concomitant]
     Active Substance: PANTOPRAZOLE
     Dates: start: 20170330, end: 201704
  8. TIMOSAN [Concomitant]
     Active Substance: TIMOLOL MALEATE
     Indication: GLAUCOMA
     Dosage: BOTH EYES
     Route: 047

REACTIONS (4)
  - Vomiting [Recovered/Resolved]
  - Diarrhoea [Recovered/Resolved]
  - Drug administration error [Recovered/Resolved]
  - Weight decreased [Unknown]

NARRATIVE: CASE EVENT DATE: 2017
